FAERS Safety Report 18464663 (Version 2)
Quarter: 2020Q4

REPORT INFORMATION
  Report Type: Spontaneous
  Country: GB (occurrence: GB)
  Receive Date: 20201104
  Receipt Date: 20201111
  Transmission Date: 20210114
  Serious: Yes (Hospitalization, Other)
  Sender: FDA-Public Use
  Company Number: GB-MYLANLABS-2020M1084684

PATIENT
  Age: 56 Year
  Sex: Male

DRUGS (1)
  1. CLOZARIL [Suspect]
     Active Substance: CLOZAPINE
     Indication: SCHIZOPHRENIA
     Dosage: UNK
     Route: 048
     Dates: start: 19900307

REACTIONS (13)
  - Immunodeficiency [Unknown]
  - Chronic obstructive pulmonary disease [Unknown]
  - Anaemia [Not Recovered/Not Resolved]
  - Pancreatic carcinoma [Unknown]
  - Dizziness [Unknown]
  - Fall [Unknown]
  - Asthenia [Unknown]
  - Lung cancer metastatic [Unknown]
  - Gastrointestinal carcinoma [Unknown]
  - Haemorrhage [Unknown]
  - Head injury [Unknown]
  - Cough [Unknown]
  - Mental disorder [Unknown]

NARRATIVE: CASE EVENT DATE: 20200930
